FAERS Safety Report 8996719 (Version 1)
Quarter: 2012Q4

REPORT INFORMATION
  Report Type: Spontaneous
  Country: US (occurrence: None)
  Receive Date: 20121228
  Receipt Date: 20121228
  Transmission Date: 20130627
  Serious: Yes (Hospitalization)
  Sender: FDA-Public Use
  Company Number: None

PATIENT
  Age: 65 Year
  Sex: Female
  Weight: 67.13 kg

DRUGS (2)
  1. BOTOX [Suspect]
     Dates: start: 20111019
  2. JUVEDERM [Suspect]
     Dates: start: 20111104

REACTIONS (8)
  - Dysphagia [None]
  - Muscular weakness [None]
  - Asthenia [None]
  - Eyelid ptosis [None]
  - Aphonia [None]
  - Expressive language disorder [None]
  - Photophobia [None]
  - Dry mouth [None]
